FAERS Safety Report 9743307 (Version 2)
Quarter: 2014Q1

REPORT INFORMATION
  Report Type: Spontaneous
  Country: US (occurrence: US)
  Receive Date: 20131210
  Receipt Date: 20140331
  Transmission Date: 20141002
  Serious: Yes (Other)
  Sender: FDA-Public Use
  Company Number: US-FRI-1000051923

PATIENT
  Age: 72 Year
  Sex: Female

DRUGS (6)
  1. NAMENDA [Suspect]
     Indication: DEMENTIA
     Dosage: 20 MG
     Route: 048
     Dates: start: 2012, end: 201401
  2. LEVOTHYROXINE [Concomitant]
     Indication: HYPOTHYROIDISM
  3. VERAPAMIL [Concomitant]
  4. HYDROCHLOROTHIAZIDE [Concomitant]
  5. OMEPRAZOLE [Concomitant]
     Indication: GASTRITIS
  6. CYCLOBENZAPRINE [Concomitant]

REACTIONS (1)
  - Nephrolithiasis [Recovered/Resolved]
